FAERS Safety Report 12565566 (Version 1)
Quarter: 2016Q3

REPORT INFORMATION
  Report Type: Spontaneous
  Country: US (occurrence: US)
  Receive Date: 20160718
  Receipt Date: 20160718
  Transmission Date: 20161109
  Serious: Yes (Other)
  Sender: FDA-Public Use
  Company Number: US-ENDO PHARMACEUTICALS INC.-2016-004410

PATIENT
  Sex: Female
  Weight: 59.47 kg

DRUGS (4)
  1. LORAZEPAM TABLETS 2MG [Suspect]
     Active Substance: LORAZEPAM
     Indication: INSOMNIA
     Route: 048
     Dates: start: 2014
  2. LORAZEPAM TABLETS 2MG [Suspect]
     Active Substance: LORAZEPAM
     Route: 048
  3. SEROQUEL [Concomitant]
     Active Substance: QUETIAPINE FUMARATE
     Indication: INSOMNIA
     Route: 048
  4. SEROQUEL [Concomitant]
     Active Substance: QUETIAPINE FUMARATE
     Route: 048

REACTIONS (7)
  - Nephrectomy [Recovered/Resolved]
  - Drug tolerance [Not Recovered/Not Resolved]
  - Renal cancer [Recovered/Resolved]
  - Off label use [Not Recovered/Not Resolved]
  - Abdominal pain upper [Not Recovered/Not Resolved]
  - Drug ineffective for unapproved indication [Not Recovered/Not Resolved]
  - Inappropriate schedule of drug administration [Recovered/Resolved]

NARRATIVE: CASE EVENT DATE: 2014
